FAERS Safety Report 6804161-6 (Version None)
Quarter: 2010Q2

REPORT INFORMATION
  Report Type: 
  Country: None (occurrence: None)
  Receive Date: 20100628
  Receipt Date: 20070515
  Transmission Date: 20101027
  Serious: Yes (Other)
  Sender: FDA-Public Use
  Company Number: US-PFIZER INC-2006147559

PATIENT
  Sex: Male
  Weight: 121.6 kg

DRUGS (6)
  1. CADUET [Suspect]
     Indication: HYPERTENSION
     Dosage: 10/40MG
     Route: 048
     Dates: start: 20060104
  2. CADUET [Suspect]
     Indication: BLOOD CHOLESTEROL INCREASED
  3. TEVETEN HCT [Suspect]
     Dosage: 600/12.5
  4. AMBIEN [Concomitant]
  5. METFORMIN/PIOGLITAZONE [Concomitant]
  6. ALL OTHER THERAPEUTIC PRODUCTS [Concomitant]

REACTIONS (1)
  - COUGH [None]
